FAERS Safety Report 4432044-8 (Version None)
Quarter: 2004Q3

REPORT INFORMATION
  Report Type: 
  Country: None (occurrence: None)
  Receive Date: 20040825
  Receipt Date: 20040813
  Transmission Date: 20050211
  Serious: Yes (Hospitalization)
  Sender: FDA-Public Use
  Company Number: PHBS2004NZ10728

PATIENT
  Age: 58 Year
  Sex: Female

DRUGS (3)
  1. CLOZARIL [Suspect]
     Dosage: 400 MG/D
     Route: 048
     Dates: start: 20020306
  2. VENLAFAXINE HCL [Suspect]
  3. PAROXETINE HCL [Concomitant]

REACTIONS (4)
  - DRUG INTERACTION [None]
  - DRUG LEVEL INCREASED [None]
  - FALL [None]
  - JOINT DISLOCATION [None]
